FAERS Safety Report 4432307-6 (Version None)
Quarter: 2004Q3

REPORT INFORMATION
  Report Type: 
  Country: None (occurrence: None)
  Receive Date: 20040820
  Receipt Date: 20040805
  Transmission Date: 20050211
  Serious: Yes (Hospitalization)
  Sender: FDA-Public Use
  Company Number: 04P-056-0269488-00

PATIENT
  Age: 82 Year
  Sex: Female

DRUGS (12)
  1. FENOFIBRATE [Suspect]
     Dosage: 200 MG, 1 IN 1 D, PER ORAL
     Route: 048
     Dates: end: 20040630
  2. RISENDRONATE SODIUM [Concomitant]
  3. VINBURNINE [Concomitant]
  4. FLUOXETINE [Concomitant]
  5. KETOPROFEN [Concomitant]
  6. ARTHROTEC [Concomitant]
  7. ACETYLCYSTEINE [Concomitant]
  8. OMEPRAZOLE [Concomitant]
  9. LEKOVIT CA [Concomitant]
  10. ACETAMINOPHEN W/ CODEINE [Concomitant]
  11. LACTULOSE [Concomitant]
  12. RENUTRYL 500 [Concomitant]

REACTIONS (13)
  - ABDOMINAL PAIN UPPER [None]
  - ANAEMIA [None]
  - ANOREXIA [None]
  - ASTHENIA [None]
  - CONSTIPATION [None]
  - FAECES DISCOLOURED [None]
  - GASTRIC ULCER [None]
  - GASTROINTESTINAL HAEMORRHAGE [None]
  - GENERAL PHYSICAL HEALTH DETERIORATION [None]
  - OEDEMA PERIPHERAL [None]
  - PALLOR [None]
  - PITTING OEDEMA [None]
  - WEIGHT DECREASED [None]
